FAERS Safety Report 16909736 (Version 1)
Quarter: 2019Q4

REPORT INFORMATION
  Report Type: Spontaneous
  Country: OM (occurrence: OM)
  Receive Date: 20191011
  Receipt Date: 20191011
  Transmission Date: 20200122
  Serious: Yes (Other)
  Sender: FDA-Public Use
  Company Number: OM-BAUSCH-BL-2019-055849

PATIENT
  Age: 31 Year
  Sex: Male

DRUGS (2)
  1. DOXYCYLINE [Suspect]
     Active Substance: DOXYCYCLINE
     Dosage: SECOND COURSE
     Route: 065
     Dates: start: 20170920, end: 20171108
  2. DOXYCYLINE [Suspect]
     Active Substance: DOXYCYCLINE
     Indication: PROPHYLAXIS
     Route: 065
     Dates: start: 20170817, end: 20170907

REACTIONS (3)
  - Orchitis [Not Recovered/Not Resolved]
  - Treatment failure [Unknown]
  - Brucellosis [Recovered/Resolved]

NARRATIVE: CASE EVENT DATE: 2017
